FAERS Safety Report 11283168 (Version 3)
Quarter: 2015Q3

REPORT INFORMATION
  Report Type: Report from Study
  Country: IT (occurrence: IT)
  Receive Date: 20150720
  Receipt Date: 20150812
  Transmission Date: 20151125
  Serious: Yes (Hospitalization)
  Sender: FDA-Public Use
  Company Number: IT-TEVA-577990ACC

PATIENT
  Age: 79 Year
  Sex: Male

DRUGS (14)
  1. FLUOROURACIL. [Suspect]
     Active Substance: FLUOROURACIL
     Dosage: 1814 MG
     Route: 041
     Dates: start: 20150413
  2. FLUOROURACIL. [Suspect]
     Active Substance: FLUOROURACIL
     Dosage: 604 MG CYCLICAL
     Route: 040
     Dates: start: 20150520
  3. LEUCOVORIN. [Suspect]
     Active Substance: LEUCOVORIN
     Dosage: 302 MG
     Route: 041
     Dates: start: 20150413
  4. ROPIRINOLE HYDROCHLORIDE [Concomitant]
     Indication: PRODUCT USED FOR UNKNOWN INDICATION
     Dates: start: 2012
  5. IRINOTECAN [Suspect]
     Active Substance: IRINOTECAN
     Indication: RECTOSIGMOID CANCER STAGE IV
     Dosage: 272 MG CYCLICAL
     Route: 042
     Dates: start: 20150413, end: 20150520
  6. LEUCOVORIN. [Suspect]
     Active Substance: LEUCOVORIN
     Dosage: 189 MG
     Route: 041
     Dates: start: 20150520
  7. SAMYR [Concomitant]
     Active Substance: METHIONINE
     Indication: PRODUCT USED FOR UNKNOWN INDICATION
     Dates: start: 2012
  8. LANSOPRAZOLE. [Concomitant]
     Active Substance: LANSOPRAZOLE
     Indication: PRODUCT USED FOR UNKNOWN INDICATION
     Dates: start: 2013
  9. INSULIN GLARGINE [Concomitant]
     Active Substance: INSULIN GLARGINE
     Indication: PRODUCT USED FOR UNKNOWN INDICATION
     Dates: start: 1996
  10. FLUOROURACIL. [Suspect]
     Active Substance: FLUOROURACIL
     Indication: RECTOSIGMOID CANCER STAGE IV
     Dosage: 604 MG CYCLICAL
     Route: 040
     Dates: start: 20150413
  11. AFLIBERCEPT [Suspect]
     Active Substance: AFLIBERCEPT
     Indication: RECTOSIGMOID CANCER STAGE IV
     Dosage: 300 MG CYCLICAL (POWDER FOR SOLUTION FOR INFUSION)
     Route: 042
     Dates: start: 20150413, end: 20150520
  12. REPAGLINIDE. [Concomitant]
     Active Substance: REPAGLINIDE
     Indication: PRODUCT USED FOR UNKNOWN INDICATION
     Dates: start: 1996
  13. FLUOROURACIL. [Suspect]
     Active Substance: FLUOROURACIL
     Dosage: 1814 MG
     Route: 041
     Dates: start: 20150520
  14. SODIUM LEVOFOLINATE [Suspect]
     Active Substance: LEVOLEUCOVORIN DISODIUM
     Indication: RECTOSIGMOID CANCER STAGE IV
     Dosage: 302 MG CYCLICAL
     Dates: start: 20150413, end: 20150520

REACTIONS (2)
  - Pain in extremity [Unknown]
  - Arterial occlusive disease [Unknown]

NARRATIVE: CASE EVENT DATE: 20150530
